FAERS Safety Report 9501189 (Version 2)
Quarter: 2013Q3

REPORT INFORMATION
  Report Type: Report from Study
  Country: AU (occurrence: AU)
  Receive Date: 20130905
  Receipt Date: 20130919
  Transmission Date: 20140515
  Serious: Yes (Other)
  Sender: FDA-Public Use
  Company Number: AU-JNJFOC-20130816848

PATIENT
  Sex: Female

DRUGS (1)
  1. SIMPONI [Suspect]
     Indication: RHEUMATOID ARTHRITIS
     Route: 058
     Dates: start: 20130520

REACTIONS (3)
  - Mass [Not Recovered/Not Resolved]
  - Brain oedema [Not Recovered/Not Resolved]
  - Pain in extremity [Not Recovered/Not Resolved]
